FAERS Safety Report 5104640-6 (Version None)
Quarter: 2006Q3

REPORT INFORMATION
  Report Type: 
  Country: None (occurrence: None)
  Receive Date: 20060914
  Receipt Date: 20060801
  Transmission Date: 20061208
  Serious: Yes (Hospitalization, Other)
  Sender: FDA-Public Use
  Company Number: PHBS2006JP11529

PATIENT
  Age: 45 Year
  Sex: Male
  Weight: 92 kg

DRUGS (18)
  1. LUDIOMIL [Suspect]
     Indication: DEPRESSION
     Dosage: 10 MG, TID
     Route: 048
     Dates: end: 20060708
  2. TOLEDOMIN [Suspect]
     Indication: DEPRESSION
     Dosage: 25 MG, TID
     Route: 048
     Dates: end: 20060708
  3. HANP [Concomitant]
     Route: 042
  4. LASIX [Concomitant]
     Route: 042
  5. DOBUTREX [Concomitant]
     Route: 042
  6. ALOSENN [Concomitant]
     Route: 048
  7. PURSENNID [Concomitant]
     Dosage: 1 DF/DAY
     Route: 048
  8. ROHYPNOL [Concomitant]
     Indication: INSOMNIA
     Dosage: 1 MG/D
     Route: 048
  9. URINORM [Concomitant]
     Indication: GOUT
     Dosage: 100 MG/D
     Route: 048
  10. DOGMATYL [Suspect]
     Indication: DEPRESSION
     Dosage: 100 MG, TID
     Route: 048
  11. PANALDINE [Concomitant]
     Dosage: 2 DF/DAY
     Route: 048
  12. BAYASPIRIN [Concomitant]
     Dosage: 2 DF/DAY
     Route: 048
  13. ISOSORBIDE MONONITRATE [Concomitant]
     Dosage: 2 DF/DAY
     Route: 048
  14. MUCOSTA [Concomitant]
     Dosage: 2 SF/DAY
     Route: 048
  15. BLOPRESS [Suspect]
     Indication: CARDIAC FAILURE
     Dosage: 4 MG, QD
     Route: 048
     Dates: start: 20060627
  16. LANIRAPID [Suspect]
     Indication: CARDIAC FAILURE
     Dosage: 0.05 MG, QD
     Route: 048
     Dates: start: 20060627
  17. ARTIST [Suspect]
     Indication: CARDIAC FAILURE
     Dosage: 1.25 MG BID
     Route: 048
     Dates: start: 20060627
  18. ACARDI [Suspect]
     Indication: CARDIAC FAILURE
     Dosage: 1.25 MG, QD
     Dates: start: 20060628

REACTIONS (10)
  - ALANINE AMINOTRANSFERASE INCREASED [None]
  - ASPARTATE AMINOTRANSFERASE INCREASED [None]
  - BLOOD CREATINE PHOSPHOKINASE INCREASED [None]
  - BLOOD LACTATE DEHYDROGENASE INCREASED [None]
  - CARDIAC FAILURE CONGESTIVE [None]
  - CARDIOTOXICITY [None]
  - COUGH [None]
  - GAMMA-GLUTAMYLTRANSFERASE INCREASED [None]
  - MYOCARDITIS [None]
  - PULMONARY HYPERTENSION [None]
